FAERS Safety Report 17351755 (Version 1)
Quarter: 2020Q1

REPORT INFORMATION
  Report Type: Spontaneous
  Country: JP (occurrence: JP)
  Receive Date: 20200130
  Receipt Date: 20200130
  Transmission Date: 20200409
  Serious: Yes (Hospitalization, Other)
  Sender: FDA-Public Use
  Company Number: JP-ELI_LILLY_AND_COMPANY-JP201912011516

PATIENT

DRUGS (1)
  1. ERBITUX [Suspect]
     Active Substance: CETUXIMAB
     Indication: HEAD AND NECK CANCER
     Dosage: UNK UNK, WEEKLY (1/W)
     Route: 041

REACTIONS (2)
  - Nausea [Not Recovered/Not Resolved]
  - Gastric fistula repair [Unknown]

NARRATIVE: CASE EVENT DATE: 20200115
